FAERS Safety Report 12966883 (Version 2)
Quarter: 2019Q1

REPORT INFORMATION
  Report Type: Spontaneous
  Country: US (occurrence: US)
  Receive Date: 20161123
  Receipt Date: 20190307
  Transmission Date: 20190417
  Serious: No
  Sender: FDA-Public Use
  Company Number: US-JNJFOC-20161115923

PATIENT
  Age: 70 Year
  Sex: Female
  Weight: 63.05 kg

DRUGS (2)
  1. PEPCID AC MAXIMUM STRENGTH [Suspect]
     Active Substance: FAMOTIDINE
     Route: 048
  2. PEPCID AC MAXIMUM STRENGTH [Suspect]
     Active Substance: FAMOTIDINE
     Indication: GASTRITIS
     Dosage: 1 CAPLET, DAILY
     Route: 048
     Dates: start: 20161113

REACTIONS (2)
  - Product use in unapproved indication [Unknown]
  - Off label use [Unknown]
